FAERS Safety Report 5638966-4 (Version None)
Quarter: 2008Q1

REPORT INFORMATION
  Report Type: 
  Country: None (occurrence: None)
  Receive Date: 20080226
  Receipt Date: 20080218
  Transmission Date: 20080703
  Serious: Yes (Hospitalization)
  Sender: FDA-Public Use
  Company Number: PHHO2008DE02431

PATIENT
  Age: 64 Year
  Sex: Male
  Weight: 108.4 kg

DRUGS (2)
  1. NO TREATMENT RECEIVED NOMED [Suspect]
     Indication: LIVER TRANSPLANT
     Dosage: NO TREATMENT
  2. CYCLOSPORINE [Suspect]
     Indication: LIVER TRANSPLANT
     Dosage: 125 MG, BID
     Route: 048
     Dates: start: 20080207

REACTIONS (1)
  - HYPERTENSIVE CRISIS [None]
